APPROVED DRUG PRODUCT: DICLOFENAC SODIUM
Active Ingredient: DICLOFENAC SODIUM
Strength: 3%
Dosage Form/Route: GEL;TOPICAL
Application: A200936 | Product #001 | TE Code: AB
Applicant: AMNEAL PHARMACEUTICALS LLC
Approved: Oct 28, 2013 | RLD: No | RS: No | Type: RX